FAERS Safety Report 7624430-X (Version None)
Quarter: 2011Q3

REPORT INFORMATION
  Report Type: 
  Country: None (occurrence: None)
  Receive Date: 20110701
  Receipt Date: 20110105
  Transmission Date: 20111222
  Serious: Yes (Other)
  Sender: FDA-Public Use
  Company Number: 7035470

PATIENT
  Age: 61 Year
  Sex: Female
  Weight: 63 kg

DRUGS (5)
  1. REBIF [Suspect]
     Indication: MULTIPLE SCLEROSIS
     Dosage: 22 MCG, 3 IN 1 WK, SUBCUTANEOUS
     Route: 058
     Dates: start: 20101217, end: 20110105
  2. AMLODIPINE [Concomitant]
  3. PROZAC [Concomitant]
  4. BACLOFEN [Concomitant]
  5. LISINOPRIL AND HYDROCHLOROTHIAZIDE (PRINZIDE /00977901/) [Concomitant]

REACTIONS (4)
  - APATHY [None]
  - INSOMNIA [None]
  - DEPRESSION [None]
  - SUICIDAL IDEATION [None]
